FAERS Safety Report 22224315 (Version 1)
Quarter: 2023Q2

REPORT INFORMATION
  Report Type: Report from Study
  Country: CA (occurrence: CA)
  Receive Date: 20230418
  Receipt Date: 20230418
  Transmission Date: 20230722
  Serious: Yes (Other)
  Sender: FDA-Public Use
  Company Number: CA-JNJFOC-20230431123

PATIENT
  Age: 6 Decade
  Sex: Female

DRUGS (1)
  1. REMICADE [Suspect]
     Active Substance: INFLIXIMAB
     Indication: Product used for unknown indication
     Dosage: LAST INFUSION WAS ON 24-MAR-2023
     Route: 042

REACTIONS (2)
  - Wound infection staphylococcal [Unknown]
  - Wound [Unknown]

NARRATIVE: CASE EVENT DATE: 20190101
